FAERS Safety Report 14163597 (Version 1)
Quarter: 2017Q4

REPORT INFORMATION
  Report Type: Report from Study
  Country: IT (occurrence: IT)
  Receive Date: 20171106
  Receipt Date: 20171106
  Transmission Date: 20180321
  Serious: Yes (Hospitalization)
  Sender: FDA-Public Use
  Company Number: IT-MYLANLABS-2017M1068813

PATIENT
  Age: 64 Year
  Sex: Female

DRUGS (2)
  1. DOXORUBICIN [Concomitant]
     Active Substance: DOXORUBICIN
     Indication: SARCOMA
     Dosage: 20MG/M2/DAY FOR THREE CONSECUTIVE DAYS
     Route: 065
  2. IFOSFAMIDE. [Suspect]
     Active Substance: IFOSFAMIDE
     Indication: SARCOMA
     Dosage: 3000MG/M2/DAY FOR THREE CONSECUTIVE DAYS
     Route: 065

REACTIONS (1)
  - Encephalopathy [Unknown]
